FAERS Safety Report 9507867 (Version 1)
Quarter: 2013Q3

REPORT INFORMATION
  Report Type: Spontaneous
  Country: US (occurrence: US)
  Receive Date: 20130909
  Receipt Date: 20130909
  Transmission Date: 20140515
  Serious: Yes (Disabling, Other)
  Sender: FDA-Public Use
  Company Number: US-PURDUE-USA-2013-0106014

PATIENT
  Sex: Male

DRUGS (3)
  1. OXYCONTIN TABLETS [Suspect]
     Dosage: 80 MG, BID
     Route: 048
     Dates: start: 1995
  2. OXYCODONE HYDROCHLORIDE (SIMILAR TO NDA 20-553) [Suspect]
     Indication: PRODUCT USED FOR UNKNOWN INDICATION
     Dosage: 30 MG, UNK
     Route: 048
  3. ROXICODONE [Concomitant]
     Indication: BREAKTHROUGH PAIN
     Dosage: 30 MG, DAILY
     Route: 048

REACTIONS (2)
  - Spinal operation [Unknown]
  - Disability [Not Recovered/Not Resolved]
